FAERS Safety Report 19394876 (Version 2)
Quarter: 2021Q4

REPORT INFORMATION
  Report Type: Spontaneous
  Country: US (occurrence: US)
  Receive Date: 20210609
  Receipt Date: 20211020
  Transmission Date: 20220303
  Serious: No
  Sender: FDA-Public Use
  Company Number: US-GLAXOSMITHKLINE-US2021AMR123370

PATIENT
  Sex: Female

DRUGS (1)
  1. ZEJULA [Suspect]
     Active Substance: NIRAPARIB
     Indication: Product used for unknown indication
     Dosage: UNK QOD, 100MG QOD ALTERNATING WITH 200MG QOD
     Route: 048
     Dates: start: 20210410, end: 20211012

REACTIONS (2)
  - Full blood count decreased [Unknown]
  - Off label use [Unknown]
